FAERS Safety Report 8620253 (Version 2)
Quarter: 2012Q4

REPORT INFORMATION
  Report Type: Report from Study
  Country: JP (occurrence: JP)
  Receive Date: 20120618
  Receipt Date: 20121008
  Transmission Date: 20130627
  Serious: Yes (Hospitalization)
  Sender: FDA-Public Use
  Company Number: JP-ROCHE-1077453

PATIENT
  Age: 75 Year
  Sex: Female

DRUGS (22)
  1. ROACTEMRA [Suspect]
     Indication: RHEUMATOID ARTHRITIS
     Route: 041
     Dates: start: 20081118, end: 20100119
  2. ROACTEMRA [Suspect]
     Route: 041
     Dates: start: 20091124, end: 20091124
  3. ROACTEMRA [Suspect]
     Route: 041
     Dates: start: 20091222, end: 20091222
  4. ROACTEMRA [Suspect]
     Route: 041
     Dates: start: 20100119, end: 20100119
  5. ROACTEMRA [Suspect]
     Route: 041
     Dates: start: 20100621, end: 20100621
  6. ROACTEMRA [Suspect]
     Route: 041
     Dates: start: 20100723, end: 20100723
  7. ROACTEMRA [Suspect]
     Route: 041
     Dates: start: 20100820, end: 20100820
  8. ROACTEMRA [Suspect]
     Route: 041
     Dates: start: 20100917, end: 20100917
  9. ROACTEMRA [Suspect]
     Route: 041
     Dates: start: 20101015, end: 20101015
  10. ROACTEMRA [Suspect]
     Route: 041
     Dates: start: 20101112, end: 20101112
  11. ROACTEMRA [Suspect]
     Route: 041
     Dates: start: 20101217
  12. PREDNISOLONE [Suspect]
     Indication: RHEUMATOID ARTHRITIS
     Route: 048
     Dates: end: 20081202
  13. PREDNISOLONE [Suspect]
     Route: 048
     Dates: start: 20081203, end: 20081216
  14. PREDNISOLONE [Suspect]
     Route: 048
     Dates: start: 20081217, end: 20090512
  15. PREDNISOLONE [Suspect]
     Route: 048
     Dates: start: 20090513, end: 20100402
  16. PREDNISOLONE [Suspect]
     Route: 048
     Dates: start: 20100403
  17. AZULFIDINE-EN [Concomitant]
     Indication: RHEUMATOID ARTHRITIS
     Route: 048
     Dates: end: 20090414
  18. PROGRAF [Concomitant]
     Indication: RHEUMATOID ARTHRITIS
     Route: 048
     Dates: end: 20090112
  19. RIMATIL [Concomitant]
     Indication: RHEUMATOID ARTHRITIS
     Route: 048
     Dates: end: 20090210
  20. DICLOFENAC SODIUM [Concomitant]
     Indication: RHEUMATOID ARTHRITIS
     Route: 048
  21. BONALON [Concomitant]
     Indication: OSTEOPOROSIS
     Route: 048
  22. PARIET [Concomitant]

REACTIONS (5)
  - Pneumonia pneumococcal [Recovering/Resolving]
  - Pneumonia pseudomonas aeruginosa [Recovering/Resolving]
  - Pleural effusion [Recovering/Resolving]
  - Pleurisy [Not Recovered/Not Resolved]
  - Hepatic steatosis [Unknown]
